FAERS Safety Report 7571633-9 (Version None)
Quarter: 2011Q2

REPORT INFORMATION
  Report Type: 
  Country: None (occurrence: None)
  Receive Date: 20110624
  Receipt Date: 20110616
  Transmission Date: 20111010
  Serious: Yes (Hospitalization)
  Sender: FDA-Public Use
  Company Number: US-MERCK-1106USA02347

PATIENT
  Age: 65 Year
  Sex: Female

DRUGS (14)
  1. ASPIRIN [Concomitant]
     Route: 065
  2. PROVENTIL [Concomitant]
     Route: 065
  3. ZOCOR [Suspect]
     Indication: BLOOD CHOLESTEROL INCREASED
     Route: 048
     Dates: start: 20090101, end: 20110615
  4. PREVACID [Concomitant]
     Route: 065
  5. AMLODIPINE [Concomitant]
     Route: 065
  6. FLUTICASONE [Concomitant]
     Route: 065
  7. SINGULAIR [Concomitant]
     Route: 065
  8. ENALAPRIL MALEATE [Concomitant]
     Route: 065
  9. OXYBUTYNIN [Concomitant]
     Route: 065
  10. SPIRIVA [Concomitant]
     Route: 065
  11. NORTRIPTYLINE [Concomitant]
     Route: 065
  12. ATROVENT [Concomitant]
     Route: 065
  13. LAMICTAL [Concomitant]
     Route: 065
  14. HYDRALAZINE [Concomitant]
     Route: 065

REACTIONS (4)
  - DIZZINESS [None]
  - VITAMIN D DEFICIENCY [None]
  - MUSCULAR WEAKNESS [None]
  - FALL [None]
